FAERS Safety Report 19036062 (Version 1)
Quarter: 2021Q1

REPORT INFORMATION
  Report Type: Spontaneous
  Country: US (occurrence: US)
  Receive Date: 20210321
  Receipt Date: 20210321
  Transmission Date: 20210420
  Serious: No
  Sender: FDA-Public Use
  Company Number: None

PATIENT
  Age: 70 Year
  Sex: Male
  Weight: 76.9 kg

DRUGS (4)
  1. METHYLPREDNISOLONE 40 MG [Concomitant]
     Dates: start: 20200721, end: 20200731
  2. ENOXAPARIN 40 MG [Concomitant]
     Active Substance: ENOXAPARIN
     Dates: start: 20200718, end: 20200806
  3. REMDESIVIR. [Suspect]
     Active Substance: REMDESIVIR
     Indication: COVID-19
     Route: 040
  4. DEXAMETHASONE 6 MG [Concomitant]
     Dates: start: 20200718, end: 20200721

REACTIONS (2)
  - Infusion site extravasation [None]
  - Oedema [None]

NARRATIVE: CASE EVENT DATE: 20200721
